FAERS Safety Report 4446917-3 (Version None)
Quarter: 2004Q3

REPORT INFORMATION
  Report Type: 
  Country: None (occurrence: None)
  Receive Date: 20040908
  Receipt Date: 20040824
  Transmission Date: 20050211
  Serious: Yes (Hospitalization)
  Sender: FDA-Public Use
  Company Number: GS-01-956

PATIENT
  Age: 47 Year
  Sex: Male
  Weight: 77.5 kg

DRUGS (4)
  1. TENOFOVIR DF (TENOFOVIR DISOPROXIL FUMARATE) [Suspect]
     Indication: HIV INFECTION
     Dosage: 300 MG, 1 IN 1 D, ORAL
     Route: 048
     Dates: start: 20030927
  2. LAMIVUDINE (LAMIVUDINE) [Concomitant]
  3. NEVIRAPINE (NEVIRAPINE) [Concomitant]
  4. PANTOLOC (PANTOPRAZOLE SODIUM) [Concomitant]

REACTIONS (3)
  - CHOLELITHIASIS [None]
  - PERIPHERAL SENSORY NEUROPATHY [None]
  - WEIGHT DECREASED [None]
